FAERS Safety Report 5381900-5 (Version None)
Quarter: 2007Q2

REPORT INFORMATION
  Report Type: 
  Country: None (occurrence: None)
  Receive Date: 20070629
  Receipt Date: 20070411
  Transmission Date: 20071010
  Serious: No
  Sender: FDA-Public Use
  Company Number: PHEH2007US05113

PATIENT

DRUGS (1)
  1. EXJADE [Suspect]

REACTIONS (1)
  - DYSGEUSIA [None]
